FAERS Safety Report 8887394 (Version 1)
Quarter: 2012Q4

REPORT INFORMATION
  Report Type: 
  Country: US (occurrence: US)
  Receive Date: 20121101
  Receipt Date: 20121101
  Transmission Date: 20130627
  Serious: Yes (Other)
  Sender: FDA-Public Use
  Company Number: PHHY2012US098740

PATIENT
  Age: 81 Year
  Sex: Female

DRUGS (1)
  1. ASCRIPTIN BUFFERED REG STRENGTH TABLETS [Suspect]
     Indication: ANTICOAGULANT THERAPY
     Dosage: 1 DF, daily dose
     Route: 048
     Dates: start: 1982

REACTIONS (3)
  - Breast cancer [Recovered/Resolved]
  - Bladder cancer [Recovered/Resolved]
  - Incorrect drug administration duration [Unknown]
